FAERS Safety Report 21189220 (Version 1)
Quarter: 2022Q3

REPORT INFORMATION
  Report Type: Spontaneous
  Country: US (occurrence: US)
  Receive Date: 20220809
  Receipt Date: 20220809
  Transmission Date: 20221027
  Serious: Yes (Hospitalization, Other)
  Sender: FDA-Public Use
  Company Number: US-BAUSCH-BL-2022-019322

PATIENT
  Age: 41 Year
  Sex: Female

DRUGS (1)
  1. IMIQUIMOD [Suspect]
     Active Substance: IMIQUIMOD
     Indication: Anogenital warts
     Dosage: WAS PRESCRIBED TO USE 3 TIMES WEEKLY FOR 12 WEEKS, NO LONGER THAN 8 HOURS. USED FOR ~1 MONTH.
     Route: 061

REACTIONS (3)
  - Skin ulcer [Recovered/Resolved]
  - Overdose [Unknown]
  - Intentional product misuse [Unknown]
